FAERS Safety Report 9315757 (Version 2)
Quarter: 2013Q2

REPORT INFORMATION
  Report Type: Report from Study
  Country: CA (occurrence: CA)
  Receive Date: 20130529
  Receipt Date: 20130612
  Transmission Date: 20140414
  Serious: Yes (Disabling)
  Sender: FDA-Public Use
  Company Number: CA-BAXTER-2013BAX019617

PATIENT
  Age: 35 Year
  Sex: Female

DRUGS (35)
  1. PROCYTOX (CYCLOPHOSPHAMIDE) 500MG/VIAL [Suspect]
     Indication: DIFFUSE LARGE B-CELL LYMPHOMA
     Route: 042
     Dates: start: 20120410
  2. PROCYTOX (CYCLOPHOSPHAMIDE) 500MG/VIAL [Suspect]
     Route: 042
     Dates: start: 20130522
  3. RITUXIMAB [Suspect]
     Indication: DIFFUSE LARGE B-CELL LYMPHOMA
     Route: 042
     Dates: start: 20120410
  4. RITUXIMAB [Suspect]
     Route: 042
     Dates: start: 20120522
  5. DOXORUBICIN [Suspect]
     Indication: DIFFUSE LARGE B-CELL LYMPHOMA
     Route: 042
     Dates: start: 20120410
  6. DOXORUBICIN [Suspect]
     Route: 042
     Dates: start: 20130522
  7. PREDNISOLONE [Suspect]
     Indication: DIFFUSE LARGE B-CELL LYMPHOMA
     Route: 048
     Dates: start: 20120410
  8. PREDNISOLONE [Suspect]
     Route: 048
     Dates: start: 20130526
  9. VINCRISTINE SULFATE [Suspect]
     Indication: DIFFUSE LARGE B-CELL LYMPHOMA
     Route: 042
     Dates: start: 20120410
  10. VINCRISTINE SULFATE [Suspect]
     Route: 042
     Dates: start: 20130522
  11. ACETAMINOPHEN [Concomitant]
     Indication: PREMEDICATION
     Route: 065
     Dates: start: 20120410, end: 20120817
  12. ACETAMINOPHEN [Concomitant]
     Indication: ABDOMINAL PAIN
  13. BENZYDAMINE HYDROCHLORIDE [Concomitant]
     Indication: MUCOSAL INFLAMMATION
     Route: 065
     Dates: start: 20120320, end: 20120827
  14. BENZYDAMINE HYDROCHLORIDE [Concomitant]
     Route: 065
     Dates: start: 20120601, end: 20120817
  15. BENZYDAMINE HYDROCHLORIDE [Concomitant]
     Route: 065
     Dates: start: 20120427, end: 20120827
  16. CODEINE [Concomitant]
     Indication: ORAL PAIN
     Route: 065
     Dates: start: 20120427, end: 20121120
  17. COLACE [Concomitant]
     Indication: CONSTIPATION
     Route: 065
     Dates: start: 201206
  18. LIDOCAINE [Concomitant]
     Indication: LIP ULCERATION
     Route: 065
     Dates: start: 20120608, end: 20121120
  19. LIDOCAINE [Concomitant]
     Indication: STOMATITIS
  20. MORPHINE SULFATE [Concomitant]
     Indication: ABDOMINAL DISCOMFORT
     Route: 065
     Dates: start: 20120320, end: 20120817
  21. MORPHINE SULFATE [Concomitant]
     Indication: STOMATITIS
     Route: 065
     Dates: start: 20120601, end: 20120817
  22. MORPHINE SULFATE [Concomitant]
     Indication: LIP ULCERATION
  23. NAPROXEN [Concomitant]
     Indication: BACK PAIN
     Route: 065
     Dates: start: 201204
  24. PANTOPRAZOLE [Concomitant]
     Indication: DYSPEPSIA
     Route: 065
     Dates: start: 20120824
  25. POLYETHYLENE GLYCOL [Concomitant]
     Indication: HAEMORRHOIDS
     Route: 065
     Dates: start: 20120608
  26. POLYETHYLENE GLYCOL [Concomitant]
     Indication: CONSTIPATION
  27. RANITIDINE [Concomitant]
     Indication: PREMEDICATION
     Route: 065
     Dates: start: 20120410, end: 20120926
  28. SENOKOT [Concomitant]
     Indication: CONSTIPATION
     Route: 065
     Dates: start: 20120817
  29. TRAMADOL HYDROCHLORIDE [Concomitant]
     Indication: ABDOMINAL PAIN
     Route: 065
     Dates: end: 20120817
  30. VALACICLOVIR HYDROCHLORIDE [Concomitant]
     Indication: PROPHYLAXIS
     Route: 065
     Dates: start: 20120307, end: 20120630
  31. VALACICLOVIR HYDROCHLORIDE [Concomitant]
     Indication: LIP PAIN
     Route: 065
     Dates: start: 20120604, end: 201208
  32. VALACICLOVIR HYDROCHLORIDE [Concomitant]
     Indication: STOMATITIS
  33. YAZ [Concomitant]
     Indication: CONTRACEPTION
     Route: 065
  34. DIPHENHYDRAMINE HYDROCHLORIDE [Concomitant]
     Indication: PREMEDICATION
     Route: 065
     Dates: start: 20120410, end: 20120926
  35. PREPARATION H [Concomitant]
     Indication: PRODUCT USED FOR UNKNOWN INDICATION
     Route: 065

REACTIONS (2)
  - Stomatitis [Recovering/Resolving]
  - Condition aggravated [Recovering/Resolving]
